FAERS Safety Report 7503063-X (Version None)
Quarter: 2011Q2

REPORT INFORMATION
  Report Type: 
  Country: None (occurrence: None)
  Receive Date: 20110518
  Receipt Date: 20110510
  Transmission Date: 20111010
  Serious: Yes (Death, Hospitalization)
  Sender: FDA-Public Use
  Company Number: 2009AC000356

PATIENT
  Age: 60 Year
  Sex: Male

DRUGS (6)
  1. CAPTOPRIL [Concomitant]
  2. DIGOXIN [Suspect]
     Dosage: 0.25 MG;QD;PO
     Route: 048
     Dates: start: 19970401, end: 20080316
  3. ASPIRIN [Concomitant]
  4. FUROSEMIDE [Concomitant]
  5. WARFARIN SODIUM [Concomitant]
  6. ATENOLOL [Concomitant]

REACTIONS (17)
  - DECREASED APPETITE [None]
  - INJURY [None]
  - IMPAIRED WORK ABILITY [None]
  - TOXICITY TO VARIOUS AGENTS [None]
  - PAIN [None]
  - HEADACHE [None]
  - MENTAL DISORDER [None]
  - MYDRIASIS [None]
  - FALL [None]
  - FATIGUE [None]
  - UNRESPONSIVE TO STIMULI [None]
  - ECONOMIC PROBLEM [None]
  - VENTRICULAR FIBRILLATION [None]
  - ANHEDONIA [None]
  - DIZZINESS [None]
  - CARDIAC ARREST [None]
  - MYOCARDIAL INFARCTION [None]
